FAERS Safety Report 9404297 (Version 1)
Quarter: 2013Q3

REPORT INFORMATION
  Report Type: Spontaneous
  Country: US (occurrence: None)
  Receive Date: 20130711
  Receipt Date: 20130711
  Transmission Date: 20140515
  Serious: Yes (Other)
  Sender: FDA-Public Use
  Company Number: 1787168

PATIENT
  Age: 55 Year
  Sex: 0

DRUGS (9)
  1. VINCRISTINE SULFATE [Suspect]
     Route: 042
     Dates: start: 20130201, end: 20130221
  2. CYTOXAN [Suspect]
     Dosage: 300 MG/M2 MILLIGRAMS/SQ. METER (1 HOUR) INTRAVENOUS (NOT OTHERWISE SPECIFIED)?
     Dates: start: 20130201, end: 20130221
  3. DOXORUBICIN [Suspect]
     Dosage: 50 MG/M2 MILLIGRAMS/SQ. METER INTRAVENOUS (NOT OTHERWISE SPECIFIED)??
     Route: 042
     Dates: start: 20130201, end: 20130221
  4. DEXAMETHASONE [Suspect]
     Route: 048
     Dates: start: 20130201, end: 20130221
  5. RITUXAN [Suspect]
     Dosage: 375 MG/M2 MILLIGRAM/SQ. METER INTRAVENOUS (NOT OTHERWISE SPECIFIED)?
     Dates: start: 20130201, end: 20130314
  6. (METHOTREXATE) [Suspect]
     Dosage: 200 MG/M2 MILLIGRAM /SQ. METER INTRAVENOUS (NOT OTHERWISE SPECIFIED)
     Route: 042
     Dates: start: 20130222, end: 20130314
  7. LEUCOVORIN [Suspect]
     Route: 048
     Dates: start: 20130222, end: 20130314
  8. CYTARABINE [Suspect]
     Indication: CHRONIC LYMPHOCYTIC LEUKAEMIA
     Dosage: 3 G/M2, D2, D3, 1 HOUR,
     Route: 042
     Dates: start: 20130222, end: 20130314
  9. ALEMTUZUMAB [Suspect]
     Route: 042
     Dates: start: 20130321, end: 20130321

REACTIONS (1)
  - Febrile neutropenia [None]
